FAERS Safety Report 24742927 (Version 1)
Quarter: 2024Q4

REPORT INFORMATION
  Report Type: Spontaneous
  Country: US (occurrence: None)
  Receive Date: 20241215
  Receipt Date: 20241215
  Transmission Date: 20250114
  Serious: Yes (Life-Threatening, Disabling, Other)
  Sender: Public
  Company Number: None

PATIENT
  Sex: Female

DRUGS (1)
  1. INJECTAFER [Suspect]
     Active Substance: FERRIC CARBOXYMALTOSE
     Indication: Anaemia
     Dosage: OTHER QUANTITY : 1 INJECTION(S);?OTHER FREQUENCY : ONE DOSE ON 4/6/22;?
     Route: 042
     Dates: start: 20220406, end: 20220406

REACTIONS (9)
  - Hypophosphataemia [None]
  - Pyrexia [None]
  - Impaired quality of life [None]
  - Postural orthostatic tachycardia syndrome [None]
  - Autonomic nervous system imbalance [None]
  - Binocular visual dysfunction [None]
  - Hypophagia [None]
  - Dyspnoea [None]
  - Renal disorder [None]

NARRATIVE: CASE EVENT DATE: 20220407
